FAERS Safety Report 6894321-0 (Version None)
Quarter: 2010Q3

REPORT INFORMATION
  Report Type: 
  Country: None (occurrence: None)
  Receive Date: 20100708
  Receipt Date: 20090917
  Transmission Date: 20110219
  Serious: Yes (Other)
  Sender: FDA-Public Use
  Company Number: 2009274797

PATIENT
  Age: 42 Year
  Sex: Male
  Weight: 77.1 kg

DRUGS (5)
  1. CHANTIX [Suspect]
     Indication: SMOKING CESSATION THERAPY
     Dates: end: 20090909
  2. TRAZODONE HCL [Concomitant]
  3. SEROQUEL [Concomitant]
  4. PROZAC [Concomitant]
  5. LISINOPRIL [Concomitant]

REACTIONS (1)
  - SUICIDE ATTEMPT [None]
